FAERS Safety Report 16862044 (Version 1)
Quarter: 2019Q3

REPORT INFORMATION
  Report Type: Spontaneous
  Country: US (occurrence: US)
  Receive Date: 20190927
  Receipt Date: 20190927
  Transmission Date: 20191005
  Serious: No
  Sender: FDA-Public Use
  Company Number: US-009507513-1909USA001291

PATIENT
  Age: 65 Year
  Sex: Female

DRUGS (2)
  1. INVANZ [Suspect]
     Active Substance: ERTAPENEM SODIUM
     Indication: LEGIONELLA INFECTION
     Dosage: 1 GRAM, Q24H , CONTINUED FOR 4WEEKS
     Route: 042
  2. INVANZ [Suspect]
     Active Substance: ERTAPENEM SODIUM
     Indication: NEUTROPENIA

REACTIONS (1)
  - Product use in unapproved indication [Unknown]
